FAERS Safety Report 5716239-9 (Version None)
Quarter: 2008Q2

REPORT INFORMATION
  Report Type: 
  Country: None (occurrence: None)
  Receive Date: 20080424
  Receipt Date: 20080410
  Transmission Date: 20081010
  Serious: Yes (Hospitalization, Congenital Anomaly)
  Sender: FDA-Public Use
  Company Number: A0701962A

PATIENT
  Sex: Male

DRUGS (3)
  1. PAXIL [Suspect]
     Indication: STRESS
     Dosage: 20MG PER DAY
     Dates: start: 20040120, end: 20040401
  2. ATENOLOL [Concomitant]
  3. UNKNOWN SUPPLEMENT [Concomitant]
     Indication: STRESS

REACTIONS (5)
  - ASTHMA [None]
  - CARDIAC DISORDER [None]
  - DRUG EXPOSURE DURING PREGNANCY [None]
  - FOETAL CARDIAC DISORDER [None]
  - MALAISE [None]
